FAERS Safety Report 5585840-8 (Version None)
Quarter: 2008Q1

REPORT INFORMATION
  Report Type: 
  Country: None (occurrence: None)
  Receive Date: 20080109
  Receipt Date: 20071231
  Transmission Date: 20080703
  Serious: Yes (Other)
  Sender: FDA-Public Use
  Company Number: FR-SANOFI-SYNTHELABO-A02200701789

PATIENT
  Sex: Male

DRUGS (1)
  1. KAYEXALATE [Suspect]
     Indication: HYPERKALAEMIA
     Dosage: 30 G
     Route: 050
     Dates: start: 20030101, end: 20030101

REACTIONS (2)
  - FOREIGN BODY TRAUMA [None]
  - RECTAL STENOSIS [None]
